FAERS Safety Report 7769182-8 (Version None)
Quarter: 2011Q3

REPORT INFORMATION
  Report Type: 
  Country: None (occurrence: None)
  Receive Date: 20110922
  Receipt Date: 20110914
  Transmission Date: 20111222
  Serious: Yes (Hospitalization)
  Sender: FDA-Public Use
  Company Number: FR-EISAI INC-E7273-00235-SPO-FR

PATIENT
  Sex: Male
  Weight: 81 kg

DRUGS (6)
  1. TARGRETIN [Suspect]
     Indication: MYCOSIS FUNGOIDES
     Route: 048
     Dates: start: 20091101, end: 20110701
  2. LEVOTHYROXINE SODIUM [Concomitant]
     Indication: HYPOTHYROIDISM
     Route: 048
     Dates: start: 20000101
  3. EPOGEN [Concomitant]
     Route: 058
  4. RENVELA [Concomitant]
     Dates: start: 20050101
  5. OMEPRAZOLE [Concomitant]
     Dates: start: 20000101
  6. IMOVANE [Concomitant]
     Dates: start: 20000101

REACTIONS (2)
  - DRUG INTERACTION [None]
  - MALABSORPTION [None]
